FAERS Safety Report 12803673 (Version 1)
Quarter: 2016Q4

REPORT INFORMATION
  Report Type: Spontaneous
  Country: US (occurrence: US)
  Receive Date: 20161003
  Receipt Date: 20161003
  Transmission Date: 20170207
  Serious: No
  Sender: FDA-Public Use
  Company Number: US-CELGENEUS-USA-2016096280

PATIENT
  Age: 65 Year
  Sex: Female

DRUGS (2)
  1. OTEZLA [Suspect]
     Active Substance: APREMILAST
     Indication: PRODUCT USED FOR UNKNOWN INDICATION
     Route: 048
     Dates: start: 20160902
  2. OTEZLA [Suspect]
     Active Substance: APREMILAST
     Route: 048
     Dates: start: 201609

REACTIONS (2)
  - Vomiting [Unknown]
  - Diarrhoea [Unknown]

NARRATIVE: CASE EVENT DATE: 20160902
